FAERS Safety Report 8614761-9 (Version None)
Quarter: 2012Q3

REPORT INFORMATION
  Report Type: 
  Country: None (occurrence: None)
  Receive Date: 20120823
  Receipt Date: 20120820
  Transmission Date: 20120928
  Serious: Yes (Death)
  Sender: FDA-Public Use
  Company Number: US-PFIZER INC-2012203596

PATIENT
  Age: 75 Year
  Sex: Female

DRUGS (1)
  1. INLYTA [Suspect]
     Indication: RENAL CELL CARCINOMA
     Dosage: 5 MG, UNK
     Dates: start: 20120410

REACTIONS (1)
  - DEATH [None]
